FAERS Safety Report 10248706 (Version 1)
Quarter: 2014Q2

REPORT INFORMATION
  Report Type: Spontaneous
  Country: GB (occurrence: GB)
  Receive Date: 20140620
  Receipt Date: 20140620
  Transmission Date: 20141212
  Serious: Yes (Death)
  Sender: FDA-Public Use
  Company Number: GB-ROCHE-1421400

PATIENT
  Sex: 0

DRUGS (1)
  1. ACTILYSE [Suspect]
     Indication: CEREBROVASCULAR ACCIDENT
     Route: 065

REACTIONS (2)
  - Haemorrhage [Fatal]
  - Gastric haemorrhage [Fatal]
